FAERS Safety Report 20524836 (Version 1)
Quarter: 2022Q1

REPORT INFORMATION
  Report Type: Spontaneous
  Country: CN (occurrence: CN)
  Receive Date: 20220228
  Receipt Date: 20220228
  Transmission Date: 20220423
  Serious: Yes (Other)
  Sender: FDA-Public Use
  Company Number: CN-LUPIN PHARMACEUTICALS INC.-2022-02320

PATIENT
  Age: 31 Year
  Sex: Female

DRUGS (8)
  1. SERTRALINE [Suspect]
     Active Substance: SERTRALINE HYDROCHLORIDE
     Indication: Major depression
     Dosage: UNK
     Route: 065
  2. FLUOXETINE [Suspect]
     Active Substance: FLUOXETINE HYDROCHLORIDE
     Indication: Major depression
     Dosage: UNK
     Route: 065
  3. CLOMIPRAMINE [Suspect]
     Active Substance: CLOMIPRAMINE
     Indication: Major depression
     Dosage: UNK
     Route: 065
  4. PAROXETINE [Suspect]
     Active Substance: PAROXETINE
     Indication: Major depression
     Dosage: UNK
     Route: 065
  5. VENLAFAXINE [Suspect]
     Active Substance: VENLAFAXINE HYDROCHLORIDE
     Indication: Major depression
     Dosage: 150 MG, QD
     Route: 065
  6. ESKETAMINE [Concomitant]
     Active Substance: ESKETAMINE
     Indication: Major depression
     Dosage: 0.4 MILLIGRAM/KILOGRAM (6 TIMES OVER 40 MINUTES EVERY OTHER DAY)
     Route: 042
  7. ESKETAMINE [Concomitant]
     Active Substance: ESKETAMINE
     Dosage: 0.4 MILLIGRAM/KILOGRAM (6 TIMES OVER 40 MINUTES ONE TIME PER DAY)
     Route: 042
  8. ARIPIPRAZOLE [Concomitant]
     Active Substance: ARIPIPRAZOLE
     Indication: Major depression
     Dosage: UNK
     Route: 065

REACTIONS (2)
  - Drug ineffective [Unknown]
  - Anaemia [Unknown]
